FAERS Safety Report 17265725 (Version 1)
Quarter: 2020Q1

REPORT INFORMATION
  Report Type: Spontaneous
  Country: CA (occurrence: CA)
  Receive Date: 20200114
  Receipt Date: 20200114
  Transmission Date: 20200409
  Serious: Yes (Disabling)
  Sender: FDA-Public Use
  Company Number: CA-TEVA-2020-CA-1167721

PATIENT
  Age: 66 Year
  Sex: Male

DRUGS (12)
  1. RIVOTRIL [Concomitant]
     Active Substance: CLONAZEPAM
  2. VITAMIN D [Concomitant]
     Active Substance: VITAMIN D NOS
  3. COVERSYL [Concomitant]
     Active Substance: PERINDOPRIL
  4. KEPPRA [Concomitant]
     Active Substance: LEVETIRACETAM
  5. BACLOFEN. [Concomitant]
     Active Substance: BACLOFEN
  6. PREDNISONE. [Concomitant]
     Active Substance: PREDNISONE
  7. ASAPHEN [Concomitant]
     Active Substance: ASPIRIN
  8. PANTOLOC /01263204 [Concomitant]
  9. TRAZODONE [Concomitant]
     Active Substance: TRAZODONE HYDROCHLORIDE
  10. NOVO-MINOCYCLINE CAPSULES 50MG [Suspect]
     Active Substance: MINOCYCLINE HYDROCHLORIDE
     Indication: PEMPHIGOID
     Dosage: 100 MILLIGRAM DAILY;
     Route: 048
  11. CALCIUM [Concomitant]
     Active Substance: CALCIUM
  12. LIPITOR [Concomitant]
     Active Substance: ATORVASTATIN CALCIUM

REACTIONS (2)
  - Muscular weakness [Recovered/Resolved]
  - Tremor [Recovered/Resolved]
